FAERS Safety Report 25120446 (Version 2)
Quarter: 2025Q1

REPORT INFORMATION
  Report Type: Spontaneous
  Country: AR (occurrence: AR)
  Receive Date: 20250325
  Receipt Date: 20250331
  Transmission Date: 20250409
  Serious: Yes (Other)
  Sender: MYLAN
  Company Number: AR-MYLANLABS-2025M1024980

PATIENT
  Age: 17 Year
  Sex: Male

DRUGS (2)
  1. CLOZAPINE [Suspect]
     Active Substance: CLOZAPINE
     Indication: Schizophrenia
     Dosage: 50 MILLIGRAM, QD (PER DAY)
     Dates: start: 20250307
  2. VALPROIC ACID [Concomitant]
     Active Substance: VALPROIC ACID
     Dosage: 10 MILLILITER, BID (EVERY 12 HOURS)

REACTIONS (2)
  - Neutropenia [Recovered/Resolved]
  - Off label use [Unknown]

NARRATIVE: CASE EVENT DATE: 20250307
